FAERS Safety Report 6559161-0 (Version None)
Quarter: 2010Q1

REPORT INFORMATION
  Report Type: 
  Country: None (occurrence: None)
  Receive Date: 20100129
  Receipt Date: 20100125
  Transmission Date: 20100710
  Serious: Yes (Other)
  Sender: FDA-Public Use
  Company Number: CN-MERCK-1001CHN00038

PATIENT
  Age: 2 Year

DRUGS (1)
  1. SINGULAIR [Suspect]
     Indication: ASTHMA
     Route: 048
     Dates: start: 20091101, end: 20100101

REACTIONS (1)
  - EPILEPSY [None]
